FAERS Safety Report 5075131-6 (Version None)
Quarter: 2006Q3

REPORT INFORMATION
  Report Type: 
  Country: None (occurrence: None)
  Receive Date: 20060809
  Receipt Date: 20051014
  Transmission Date: 20061208
  Serious: No
  Sender: FDA-Public Use
  Company Number: US-AMGEN-KDL154659

PATIENT
  Sex: Male
  Weight: 72.6 kg

DRUGS (10)
  1. PROCRIT [Suspect]
     Indication: RENAL FAILURE CHRONIC
     Route: 058
     Dates: start: 20051005
  2. BLOOD CELLS, PACKED HUMAN [Concomitant]
  3. GLYBURIDE [Concomitant]
  4. LASIX [Concomitant]
  5. COREG [Concomitant]
  6. KLONOPIN [Concomitant]
  7. LISINOPRIL [Concomitant]
  8. CELLCEPT [Concomitant]
  9. PROGRAF [Concomitant]
  10. TOPRAL [Concomitant]

REACTIONS (1)
  - BLOOD GLUCOSE INCREASED [None]
